FAERS Safety Report 24665990 (Version 2)
Quarter: 2025Q1

REPORT INFORMATION
  Report Type: Spontaneous
  Country: US (occurrence: US)
  Receive Date: 20241126
  Receipt Date: 20250228
  Transmission Date: 20250409
  Serious: No
  Sender: PRASCO
  Company Number: US-Prasco Laboratories-PRAS20241263

PATIENT
  Age: 83 Year
  Sex: Female

DRUGS (2)
  1. ESTRADIOL [Suspect]
     Active Substance: ESTRADIOL
     Indication: Atrophic vulvovaginitis
     Route: 067
     Dates: start: 202409, end: 20241120
  2. ESTRADIOL [Suspect]
     Active Substance: ESTRADIOL
     Route: 067

REACTIONS (4)
  - Vulvovaginal burning sensation [Recovered/Resolved]
  - Abdominal pain [Recovered/Resolved]
  - Product formulation issue [None]
  - Product substitution issue [None]

NARRATIVE: CASE EVENT DATE: 20240101
